FAERS Safety Report 11240628 (Version 1)
Quarter: 2015Q3

REPORT INFORMATION
  Report Type: Spontaneous
  Country: US (occurrence: None)
  Receive Date: 20150701
  Receipt Date: 20150701
  Transmission Date: 20151125
  Serious: Yes (Life-Threatening)
  Sender: FDA-Public Use
  Company Number: None

PATIENT
  Age: 74 Year
  Sex: Male

DRUGS (1)
  1. IBUPROFEN. [Suspect]
     Active Substance: IBUPROFEN
     Indication: HEADACHE
     Dosage: MG
     Route: 048
     Dates: start: 20120901, end: 20121122

REACTIONS (8)
  - Squamous cell carcinoma of the tongue [None]
  - Pharyngeal oedema [None]
  - Angioedema [None]
  - Urticaria [None]
  - Metastases to lymph nodes [None]
  - Swollen tongue [None]
  - Pruritus [None]
  - Metastases to lung [None]

NARRATIVE: CASE EVENT DATE: 20121122
